FAERS Safety Report 5188353-0 (Version None)
Quarter: 2006Q4

REPORT INFORMATION
  Report Type: 
  Country: None (occurrence: None)
  Receive Date: 20061214
  Receipt Date: 20061204
  Transmission Date: 20070319
  Serious: Yes (Other)
  Sender: FDA-Public Use
  Company Number: 2006115574

PATIENT
  Age: 80 Year
  Sex: Female
  Weight: 52.1637 kg

DRUGS (26)
  1. LIPITOR [Suspect]
     Indication: BLOOD CHOLESTEROL INCREASED
     Dosage: 80 MG (80 MG, 1 IN 1 D)
     Dates: start: 20060601
  2. CODEINE SUL TAB [Suspect]
  3. NITROFURANTOIN [Suspect]
  4. NITROGLYCERIN [Concomitant]
  5. LANOXIN [Concomitant]
  6. CALCIUM (CALCIUM) [Concomitant]
  7. VITAMIN C (VITAMIN C) [Concomitant]
  8. VITAMIN D [Concomitant]
  9. DIOVAN [Concomitant]
  10. MAGNESIUM (MAGNESIUM) [Concomitant]
  11. CLINDAMYCIN (CLINDAMYCIN) [Concomitant]
  12. FEMARA [Concomitant]
  13. SYNTHROID [Concomitant]
  14. PREVACID [Concomitant]
  15. BILBERRY (MYRTILLUS) [Concomitant]
  16. LUTEIN (XANTHOPHYLL) [Concomitant]
  17. FOLATE (FOLIC ACID) [Concomitant]
  18. ST. JOHN'S WORT (ST. JOHN'S WORT) [Concomitant]
  19. MULTIVITAMIN [Concomitant]
  20. IRON (IRON) [Concomitant]
  21. TRICOR [Concomitant]
  22. PRAVACHOL [Concomitant]
  23. ZETIA [Concomitant]
  24. ASPIRIN [Concomitant]
  25. HERBAL PREPARATION (HERBAL PREPARATION) [Concomitant]
  26. HOMEOPATHIC PREPARATION (HOMEOPATHIC PREPARATION) [Concomitant]

REACTIONS (6)
  - ANAEMIA [None]
  - CHEILITIS [None]
  - FEELING ABNORMAL [None]
  - LOW DENSITY LIPOPROTEIN INCREASED [None]
  - SPEECH DISORDER [None]
  - TONGUE DISORDER [None]
